FAERS Safety Report 9285179 (Version 1)
Quarter: 2013Q2

REPORT INFORMATION
  Report Type: Spontaneous
  Country: NL (occurrence: None)
  Receive Date: 20130507
  Receipt Date: 20130507
  Transmission Date: 20140414
  Serious: Yes (Hospitalization, Other)
  Sender: FDA-Public Use
  Company Number: NL-MACLEODS PHARMA-000090

PATIENT
  Age: 60 Year
  Sex: Male

DRUGS (5)
  1. PRAMIPEXOLE [Suspect]
     Indication: RESTLESS LEGS SYNDROME
  2. OLANZAPINE (OLANZAPINE) [Suspect]
     Indication: HYPOMANIA
  3. LITHIUM (LITHIUM) UNKNOWN [Concomitant]
  4. OXAZEPAM (OXAZEPAM) [Concomitant]
  5. MIRTAZAPINE (MIRTAZAPINE) [Concomitant]

REACTIONS (7)
  - Mania [None]
  - Drug interaction [None]
  - Renal transplant [None]
  - Tremor [None]
  - Condition aggravated [None]
  - Self-medication [None]
  - Off label use [None]
